FAERS Safety Report 11540377 (Version 1)
Quarter: 2015Q3

REPORT INFORMATION
  Report Type: Spontaneous
  Country: US (occurrence: US)
  Receive Date: 20150923
  Receipt Date: 20150923
  Transmission Date: 20151125
  Serious: No
  Sender: FDA-Public Use
  Company Number: US-BEH-2014044796

PATIENT
  Age: 55 Year
  Sex: Female
  Weight: 75 kg

DRUGS (51)
  1. NEURONTIN [Concomitant]
     Active Substance: GABAPENTIN
  2. CITALOPRAM [Concomitant]
     Active Substance: CITALOPRAM HYDROBROMIDE
  3. CHLORPROMAZINE. [Concomitant]
     Active Substance: CHLORPROMAZINE
  4. XYLOCAINE [Concomitant]
     Active Substance: LIDOCAINE HYDROCHLORIDE
  5. ZOFRAN [Concomitant]
     Active Substance: ONDANSETRON HYDROCHLORIDE
  6. RELPAX [Concomitant]
     Active Substance: ELETRIPTAN HYDROBROMIDE
  7. MARINOL [Concomitant]
     Active Substance: DRONABINOL
  8. MORPHINE [Concomitant]
     Active Substance: MORPHINE
  9. ALBUTEROL. [Concomitant]
     Active Substance: ALBUTEROL
  10. NYSTATIN. [Concomitant]
     Active Substance: NYSTATIN
  11. MELATONIN [Concomitant]
     Active Substance: MELATONIN
  12. IBUPROFEN. [Concomitant]
     Active Substance: IBUPROFEN
  13. PRIVIGEN [Suspect]
     Active Substance: HUMAN IMMUNOGLOBULIN G
     Indication: IMMUNODEFICIENCY COMMON VARIABLE
     Route: 042
     Dates: start: 20140731
  14. MAALOX ANTACID [Concomitant]
     Active Substance: ALUMINUM HYDROXIDE\DIMETHICONE\MAGNESIUM HYDROXIDE
  15. NEXIUM [Concomitant]
     Active Substance: ESOMEPRAZOLE MAGNESIUM
  16. ALL OTHER THERAPEUTIC PRODUCTS [Concomitant]
     Active Substance: UNSPECIFIED INGREDIENT
  17. HEPARIN [Concomitant]
     Active Substance: HEPARIN SODIUM
  18. VALIUM [Concomitant]
     Active Substance: DIAZEPAM
  19. BUTORPHANOL [Concomitant]
     Active Substance: BUTORPHANOL
  20. DHEA ACETATE [Concomitant]
     Active Substance: PRASTERONE ACETATE
  21. CEFTIN [Concomitant]
     Active Substance: CEFUROXIME AXETIL
  22. AMITRIPTYLINE [Concomitant]
     Active Substance: AMITRIPTYLINE
  23. ATIVAN [Concomitant]
     Active Substance: LORAZEPAM
  24. PRIVIGEN [Suspect]
     Active Substance: HUMAN IMMUNOGLOBULIN G
     Indication: MULTIPLE SCLEROSIS
     Route: 042
     Dates: start: 20140731
  25. TRAMADOL. [Concomitant]
     Active Substance: TRAMADOL
  26. MECLIZINE [Concomitant]
     Active Substance: MECLIZINE\MECLIZINE HYDROCHLORIDE
  27. ZEGERID [Concomitant]
     Active Substance: OMEPRAZOLE\SODIUM BICARBONATE
  28. NORMAL SALINE [Concomitant]
     Active Substance: SODIUM CHLORIDE
  29. SONATA [Concomitant]
     Active Substance: ZALEPLON
  30. ZITHROMAX [Concomitant]
     Active Substance: AZITHROMYCIN DIHYDRATE
  31. DIPHENHYDRAMINE. [Concomitant]
     Active Substance: DIPHENHYDRAMINE
  32. SINGULAIR [Concomitant]
     Active Substance: MONTELUKAST SODIUM
  33. TOPAMAX [Concomitant]
     Active Substance: TOPIRAMATE
  34. FROVA [Concomitant]
     Active Substance: FROVATRIPTAN SUCCINATE
  35. MUCINEX [Concomitant]
     Active Substance: GUAIFENESIN
  36. CYANOCOBALAMIN. [Concomitant]
     Active Substance: CYANOCOBALAMIN
  37. EFFEXOR [Concomitant]
     Active Substance: VENLAFAXINE HYDROCHLORIDE
  38. EPIPEN [Concomitant]
     Active Substance: EPINEPHRINE
  39. PROMETHAZINE [Concomitant]
     Active Substance: PROMETHAZINE\PROMETHAZINE HYDROCHLORIDE
  40. MIRALAX [Concomitant]
     Active Substance: POLYETHYLENE GLYCOL 3350
  41. RANITIDINE [Concomitant]
     Active Substance: RANITIDINE\RANITIDINE HYDROCHLORIDE
  42. ACETAMINOPHEN. [Concomitant]
     Active Substance: ACETAMINOPHEN
  43. ALL OTHER THERAPEUTIC PRODUCTS [Concomitant]
     Active Substance: UNSPECIFIED INGREDIENT
  44. COPAXONE [Concomitant]
     Active Substance: GLATIRAMER ACETATE
  45. LYRICA [Concomitant]
     Active Substance: PREGABALIN
  46. TEGRETOL [Concomitant]
     Active Substance: CARBAMAZEPINE
  47. PROCHLORPERAZINE. [Concomitant]
     Active Substance: PROCHLORPERAZINE
  48. CRANBERRY. [Concomitant]
     Active Substance: CRANBERRY
  49. NAMENDA [Concomitant]
     Active Substance: MEMANTINE HYDROCHLORIDE
  50. DRONABINOL. [Concomitant]
     Active Substance: DRONABINOL
  51. TIZANIDINE. [Concomitant]
     Active Substance: TIZANIDINE

REACTIONS (1)
  - Diarrhoea [Unknown]

NARRATIVE: CASE EVENT DATE: 20140731
